FAERS Safety Report 17507051 (Version 2)
Quarter: 2022Q2

REPORT INFORMATION
  Report Type: Report from Study
  Country: US (occurrence: US)
  Receive Date: 20200306
  Receipt Date: 20220513
  Transmission Date: 20220721
  Serious: No
  Sender: FDA-Public Use
  Company Number: US-TEVA-2020-US-1193266

PATIENT
  Sex: Male

DRUGS (1)
  1. CLOZAPINE [Suspect]
     Active Substance: CLOZAPINE
     Dosage: TAKING CLOZAPINE (UNKNOWN NDC) FOR ^ABOUT 8-9 YEARS^
     Route: 065

REACTIONS (2)
  - Drug level increased [Unknown]
  - Chest pain [Unknown]
